FAERS Safety Report 9444668 (Version 1)
Quarter: 2013Q3

REPORT INFORMATION
  Report Type: Spontaneous
  Country: FR (occurrence: FR)
  Receive Date: 20130807
  Receipt Date: 20130807
  Transmission Date: 20140515
  Serious: Yes (Death, Other)
  Sender: FDA-Public Use
  Company Number: FR-PFIZER INC-2013227629

PATIENT
  Age: 77 Year
  Sex: Male

DRUGS (5)
  1. CORDARONE [Suspect]
     Dosage: UNK
     Route: 048
     Dates: start: 20130621, end: 20130714
  2. PRADAXA [Suspect]
     Dosage: 220 MG, DAILY
     Route: 048
     Dates: start: 20130624, end: 20130714
  3. TEMERIT [Suspect]
     Dosage: 2.5 MG, DAILY
     Route: 048
     Dates: start: 20130626, end: 20130714
  4. FAMPYRA [Concomitant]
     Dosage: UNK
     Dates: start: 20130514, end: 20130703
  5. SOLUMEDROL [Concomitant]
     Dosage: UNK

REACTIONS (3)
  - Subdural haematoma [Fatal]
  - Cardio-respiratory arrest [Fatal]
  - Leukocyturia [Unknown]
